FAERS Safety Report 6011845-9 (Version None)
Quarter: 2008Q4

REPORT INFORMATION
  Report Type: 
  Country: None (occurrence: None)
  Receive Date: 20081218
  Receipt Date: 20081211
  Transmission Date: 20090506
  Serious: Yes (Hospitalization, Other)
  Sender: FDA-Public Use
  Company Number: US-WYE-H07148608

PATIENT
  Sex: Male
  Weight: 137.1 kg

DRUGS (4)
  1. RAPAMUNE [Suspect]
     Indication: PROPHYLAXIS AGAINST TRANSPLANT REJECTION
     Route: 048
     Dates: start: 20080419, end: 20080717
  2. RAPAMUNE [Suspect]
     Route: 048
     Dates: start: 20080718, end: 20080725
  3. RAPAMUNE [Suspect]
     Route: 048
     Dates: start: 20080726
  4. PROGRAF [Concomitant]
     Indication: PROPHYLAXIS AGAINST TRANSPLANT REJECTION
     Dates: start: 20081027, end: 20081031

REACTIONS (1)
  - PROSTATE CANCER METASTATIC [None]
